FAERS Safety Report 7278828-2 (Version None)
Quarter: 2011Q1

REPORT INFORMATION
  Report Type: 
  Country: None (occurrence: None)
  Receive Date: 20110207
  Receipt Date: 20110127
  Transmission Date: 20110831
  Serious: Yes (Death, Life-Threatening, Hospitalization, Other)
  Sender: FDA-Public Use
  Company Number: PL-JNJFOC-20110100821

PATIENT
  Age: 14 Year
  Sex: Male

DRUGS (8)
  1. METHOTREXATE [Suspect]
     Indication: ANAPLASTIC LARGE CELL LYMPHOMA T- AND NULL-CELL TYPES
     Route: 037
  2. CYCLOPHOSPHAMIDE [Suspect]
     Indication: ANAPLASTIC LARGE CELL LYMPHOMA T- AND NULL-CELL TYPES
     Route: 042
  3. IFOSFAMIDE [Suspect]
     Indication: ANAPLASTIC LARGE CELL LYMPHOMA T- AND NULL-CELL TYPES
     Route: 037
  4. DEXAMETHASONE [Suspect]
     Indication: ANAPLASTIC LARGE CELL LYMPHOMA T- AND NULL-CELL TYPES
     Route: 048
  5. ETOPOSIDE [Suspect]
     Indication: ANAPLASTIC LARGE CELL LYMPHOMA T- AND NULL-CELL TYPES
     Route: 037
  6. CAELYX [Suspect]
     Indication: ANAPLASTIC LARGE CELL LYMPHOMA T- AND NULL-CELL TYPES
     Route: 042
  7. CYTARABINE [Suspect]
     Indication: ANAPLASTIC LARGE CELL LYMPHOMA T- AND NULL-CELL TYPES
     Route: 037
  8. PREDNISOLONE [Suspect]
     Indication: ANAPLASTIC LARGE CELL LYMPHOMA T- AND NULL-CELL TYPES
     Route: 037

REACTIONS (7)
  - THROMBOPHLEBITIS SUPERFICIAL [None]
  - FUNGAL INFECTION [None]
  - CARDIOMYOPATHY [None]
  - DEATH [None]
  - LYMPHOMA [None]
  - PNEUMONIA [None]
  - PANCYTOPENIA [None]
